FAERS Safety Report 24790119 (Version 1)
Quarter: 2024Q4

REPORT INFORMATION
  Report Type: Spontaneous
  Country: CA (occurrence: CA)
  Receive Date: 20241230
  Receipt Date: 20241230
  Transmission Date: 20250115
  Serious: Yes (Hospitalization)
  Sender: MYLAN
  Company Number: CA-MYLANLABS-2024M1116187

PATIENT
  Sex: Male

DRUGS (18)
  1. AMLODIPINE [Suspect]
     Active Substance: AMLODIPINE BESYLATE
     Indication: Complications of transplanted heart
     Dosage: 10 MILLIGRAM, QD (1 EVERY 1 DAYS)
     Route: 065
  2. AMLODIPINE [Suspect]
     Active Substance: AMLODIPINE BESYLATE
     Indication: Angiopathy
  3. ASPIRIN [Suspect]
     Active Substance: ASPIRIN
     Indication: Complications of transplanted heart
     Dosage: UNK
     Route: 065
  4. ASPIRIN [Suspect]
     Active Substance: ASPIRIN
     Indication: Angiopathy
  5. CLOPIDOGREL [Suspect]
     Active Substance: CLOPIDOGREL BISULFATE
     Indication: Angiopathy
     Dosage: UNK
     Route: 065
  6. CLOPIDOGREL [Suspect]
     Active Substance: CLOPIDOGREL BISULFATE
     Indication: Complications of transplanted heart
  7. HYDRALAZINE [Suspect]
     Active Substance: HYDRALAZINE HYDROCHLORIDE
     Indication: Complications of transplanted heart
     Dosage: 100 MILLIGRAM, TID (3 EVERY 1 DAYS)
     Route: 065
  8. HYDRALAZINE [Suspect]
     Active Substance: HYDRALAZINE HYDROCHLORIDE
     Indication: Angiopathy
  9. HYDROMORPHONE [Suspect]
     Active Substance: HYDROMORPHONE
     Indication: Complications of transplanted heart
     Dosage: 2 MILLIGRAM
     Route: 065
  10. HYDROMORPHONE [Suspect]
     Active Substance: HYDROMORPHONE
     Indication: Angiopathy
     Dosage: 9 MILLIGRAM, BID (2 EVERY 1 DAYS)
     Route: 065
  11. METOPROLOL [Suspect]
     Active Substance: METOPROLOL
     Indication: Complications of transplanted heart
     Dosage: 100 MILLIGRAM, TID (3 EVERY 1 DAYS)
     Route: 065
  12. METOPROLOL [Suspect]
     Active Substance: METOPROLOL
     Indication: Angiopathy
  13. PRAVASTATIN [Suspect]
     Active Substance: PRAVASTATIN
     Indication: Complications of transplanted heart
     Dosage: 60 MILLIGRAM, QD (1 EVERY 1 DAYS)
     Route: 065
  14. PRAVASTATIN [Suspect]
     Active Substance: PRAVASTATIN
     Indication: Angiopathy
  15. SIROLIMUS [Suspect]
     Active Substance: SIROLIMUS
     Indication: Complications of transplanted heart
     Dosage: UNK
     Route: 065
  16. SIROLIMUS [Suspect]
     Active Substance: SIROLIMUS
     Indication: Angiopathy
  17. TACROLIMUS [Suspect]
     Active Substance: TACROLIMUS
     Indication: Angiopathy
     Dosage: UNK
     Route: 065
  18. TACROLIMUS [Suspect]
     Active Substance: TACROLIMUS
     Indication: Complications of transplanted heart

REACTIONS (1)
  - Therapeutic product ineffective [Unknown]
